FAERS Safety Report 25067190 (Version 1)
Quarter: 2025Q1

REPORT INFORMATION
  Report Type: Spontaneous
  Country: CN (occurrence: CN)
  Receive Date: 20250312
  Receipt Date: 20250312
  Transmission Date: 20250408
  Serious: Yes (Life-Threatening, Hospitalization, Other)
  Sender: ALKEM
  Company Number: CN-ALKEM LABORATORIES LIMITED-CN-ALKEM-2025-02390

PATIENT
  Age: 32 Year
  Sex: Female

DRUGS (1)
  1. AMLODIPINE BESYLATE [Suspect]
     Active Substance: AMLODIPINE BESYLATE
     Indication: Product used for unknown indication
     Route: 065

REACTIONS (19)
  - Vasoplegia syndrome [Unknown]
  - Acute left ventricular failure [Unknown]
  - Left ventricular dysfunction [Unknown]
  - Pulmonary oedema [Unknown]
  - Acute kidney injury [Unknown]
  - Shock [Recovering/Resolving]
  - Circulatory collapse [Recovering/Resolving]
  - Cardiogenic shock [Recovering/Resolving]
  - Tachypnoea [Unknown]
  - Lethargy [Unknown]
  - Myocardial depression [Unknown]
  - Lactic acidosis [Unknown]
  - Hypotension [Unknown]
  - Sinus tachycardia [Unknown]
  - Somnolence [Unknown]
  - Vomiting [Unknown]
  - Toxicity to various agents [Unknown]
  - Intentional overdose [Unknown]
  - Hypocalcaemia [Unknown]
